FAERS Safety Report 13577451 (Version 1)
Quarter: 2017Q2

REPORT INFORMATION
  Report Type: Spontaneous
  Country: GB (occurrence: GB)
  Receive Date: 20170524
  Receipt Date: 20170524
  Transmission Date: 20170830
  Serious: Yes (Hospitalization)
  Sender: FDA-Public Use
  Company Number: GB-TEVA-768989ACC

PATIENT
  Age: 93 Year
  Sex: Female

DRUGS (7)
  1. FERROUS FUMARATE [Concomitant]
     Active Substance: FERROUS FUMARATE
  2. RAMIPRIL. [Suspect]
     Active Substance: RAMIPRIL
     Route: 048
  3. ADALAT CC [Suspect]
     Active Substance: NIFEDIPINE
     Dosage: 20 MILLIGRAM DAILY;
     Route: 048
  4. ALENDRONIC ACID [Concomitant]
     Active Substance: ALENDRONIC ACID
  5. CETIRIZINE HYDROCHLORIDE. [Concomitant]
     Active Substance: CETIRIZINE HYDROCHLORIDE
  6. TEMAZEPAM. [Concomitant]
     Active Substance: TEMAZEPAM
  7. VITAMIN D [Concomitant]
     Active Substance: CHOLECALCIFEROL

REACTIONS (2)
  - Chronic kidney disease [Unknown]
  - Acute kidney injury [Recovering/Resolving]
